FAERS Safety Report 14389405 (Version 2)
Quarter: 2018Q3

REPORT INFORMATION
  Report Type: Spontaneous
  Country: US (occurrence: US)
  Receive Date: 20180115
  Receipt Date: 20180921
  Transmission Date: 20181010
  Serious: Yes (Other)
  Sender: FDA-Public Use
  Company Number: US-SA-2017SA246403

PATIENT
  Age: 45 Year
  Sex: Female
  Weight: 65.77 kg

DRUGS (9)
  1. XANAX [Concomitant]
     Active Substance: ALPRAZOLAM
     Dosage: UNK
     Dates: start: 2002
  2. NEOSAR [Concomitant]
     Active Substance: CYCLOPHOSPHAMIDE
  3. HEXAMETHYLMELAMINE [Concomitant]
     Dosage: UNK
     Route: 065
  4. CARMUSTINE [Concomitant]
     Active Substance: CARMUSTINE
  5. TAXOTERE [Suspect]
     Active Substance: DOCETAXEL
     Indication: BREAST CANCER FEMALE
     Dosage: 75 MG, Q3W
     Route: 042
     Dates: start: 20100910, end: 20100910
  6. HEXETIDINE [Concomitant]
     Active Substance: HEXETIDINE
  7. TAXOTERE [Suspect]
     Active Substance: DOCETAXEL
     Dosage: 75 MG, Q3W
     Route: 042
     Dates: start: 20101222, end: 20101222
  8. TAXOL [Concomitant]
     Active Substance: PACLITAXEL
  9. BUPROPION. [Suspect]
     Active Substance: BUPROPION
     Dosage: UNK
     Dates: start: 2002

REACTIONS (2)
  - Psychological trauma [Unknown]
  - Alopecia [Recovering/Resolving]

NARRATIVE: CASE EVENT DATE: 201009
